FAERS Safety Report 24959665 (Version 1)
Quarter: 2025Q1

REPORT INFORMATION
  Report Type: Spontaneous
  Country: US (occurrence: None)
  Receive Date: 20250211
  Receipt Date: 20250211
  Transmission Date: 20250409
  Serious: No
  Sender: FDA-CTU
  Company Number: None

PATIENT
  Age: 18 Year
  Sex: Male

DRUGS (2)
  1. LEXAPRO [Suspect]
     Active Substance: ESCITALOPRAM OXALATE
     Indication: Depression
     Dosage: FREQUENCY : DAILY;?
     Route: 048
     Dates: start: 20240117, end: 20240221
  2. lsotretinoin [Concomitant]

REACTIONS (8)
  - Headache [None]
  - Decreased appetite [None]
  - Indifference [None]
  - Suicidal ideation [None]
  - Anxiety [None]
  - Asphyxia [None]
  - Educational problem [None]
  - Treatment noncompliance [None]

NARRATIVE: CASE EVENT DATE: 20240221
